FAERS Safety Report 18208753 (Version 1)
Quarter: 2020Q3

REPORT INFORMATION
  Report Type: Report from Study
  Country: BR (occurrence: BR)
  Receive Date: 20200828
  Receipt Date: 20200828
  Transmission Date: 20201103
  Serious: Yes (Death, Other)
  Sender: FDA-Public Use
  Company Number: NVSC2020BR236718

PATIENT
  Age: 74 Year
  Sex: Female

DRUGS (1)
  1. DIOVAN [Suspect]
     Active Substance: VALSARTAN
     Indication: HYPERTENSION
     Dosage: UNK
     Route: 065
     Dates: start: 2000

REACTIONS (11)
  - Aphonia [Unknown]
  - Cerebrovascular accident [Fatal]
  - Somnolence [Unknown]
  - Dysphagia [Unknown]
  - Hypersomnia [Unknown]
  - Hypertension [Unknown]
  - Insomnia [Unknown]
  - Diabetes mellitus [Unknown]
  - Blood pressure decreased [Unknown]
  - Feeding tube user [Unknown]
  - Eating disorder [Unknown]

NARRATIVE: CASE EVENT DATE: 200011
